FAERS Safety Report 10355885 (Version 3)
Quarter: 2015Q1

REPORT INFORMATION
  Report Type: Spontaneous
  Country: DO (occurrence: DO)
  Receive Date: 20140801
  Receipt Date: 20150114
  Transmission Date: 20150720
  Serious: Yes (Other)
  Sender: FDA-Public Use
  Company Number: DO-AMGEN-DOMSP2014057834

PATIENT
  Sex: Female

DRUGS (1)
  1. ENBREL [Suspect]
     Active Substance: ETANERCEPT
     Indication: PSORIASIS
     Dosage: 25 MG, WEEKLY
     Route: 058
     Dates: start: 20130104, end: 20140812

REACTIONS (11)
  - Respiratory tract infection [Recovering/Resolving]
  - Mobility decreased [Unknown]
  - Pharyngotonsillitis [Recovering/Resolving]
  - Influenza [Unknown]
  - Hepatic steatosis [Unknown]
  - Tonsillitis streptococcal [Recovered/Resolved]
  - Tympanic membrane perforation [Recovering/Resolving]
  - Myalgia [Unknown]
  - Chikungunya virus infection [Recovered/Resolved]
  - Arthralgia [Unknown]
  - Transaminases increased [Unknown]

NARRATIVE: CASE EVENT DATE: 20130619
